FAERS Safety Report 7131285-9 (Version None)
Quarter: 2010Q4

REPORT INFORMATION
  Report Type: 
  Country: None (occurrence: None)
  Receive Date: 20101124
  Receipt Date: 20101124
  Transmission Date: 20110411
  Serious: Yes (Other)
  Sender: FDA-Public Use
  Company Number: None

PATIENT
  Age: 77 Year
  Sex: Female
  Weight: 54.4316 kg

DRUGS (2)
  1. FOSAMAX [Suspect]
     Indication: OSTEOPOROSIS
     Dosage: 1 WEEKLY
     Dates: start: 20001201, end: 20081001
  2. FOSAMAX [Suspect]
     Indication: OSTEOPOROSIS
     Dosage: 1 WEEKLY/THEN MONTHLY
     Dates: start: 20081001, end: 20100601

REACTIONS (8)
  - APHAGIA [None]
  - DYSPHAGIA [None]
  - EAR PAIN [None]
  - HEADACHE [None]
  - HYPOGLOSSAL NERVE DISORDER [None]
  - PAIN IN JAW [None]
  - TONGUE DISORDER [None]
  - WEIGHT DECREASED [None]
